FAERS Safety Report 10308354 (Version 1)
Quarter: 2014Q3

REPORT INFORMATION
  Report Type: Spontaneous
  Country: US (occurrence: US)
  Receive Date: 20140716
  Receipt Date: 20140716
  Transmission Date: 20150326
  Serious: Yes (Disabling)
  Sender: FDA-Public Use
  Company Number: US-PFIZER INC-2014194919

PATIENT
  Age: 33 Year
  Sex: Female
  Weight: 72.11 kg

DRUGS (4)
  1. LYRICA [Suspect]
     Active Substance: PREGABALIN
     Indication: FIBROMYALGIA
     Dosage: UNK
  2. LYRICA [Suspect]
     Active Substance: PREGABALIN
     Indication: SJOGREN^S SYNDROME
  3. LYRICA [Suspect]
     Active Substance: PREGABALIN
     Indication: ARTHRALGIA
  4. OXYCODONE [Concomitant]
     Active Substance: OXYCODONE
     Indication: PAIN
     Dosage: 15 MG, AS NEEDED

REACTIONS (3)
  - Arthropathy [Unknown]
  - Movement disorder [Unknown]
  - Systemic lupus erythematosus [Unknown]

NARRATIVE: CASE EVENT DATE: 200406
